FAERS Safety Report 25836060 (Version 2)
Quarter: 2025Q4

REPORT INFORMATION
  Report Type: Spontaneous
  Country: US (occurrence: US)
  Receive Date: 20250923
  Receipt Date: 20251103
  Transmission Date: 20260119
  Serious: Yes (Hospitalization, Other)
  Sender: SANOFI AVENTIS
  Company Number: US-SA-2025SA282560

PATIENT
  Age: 82 Year
  Sex: Female
  Weight: 74.376 kg

DRUGS (1)
  1. DUPIXENT [Suspect]
     Active Substance: DUPILUMAB
     Indication: Asthma
     Dosage: 300 MG, QOW
     Route: 058

REACTIONS (2)
  - Atrial fibrillation [Unknown]
  - Respiratory failure [Unknown]

NARRATIVE: CASE EVENT DATE: 20250101
